FAERS Safety Report 24542208 (Version 1)
Quarter: 2024Q4

REPORT INFORMATION
  Report Type: Spontaneous
  Country: DK (occurrence: DK)
  Receive Date: 20241023
  Receipt Date: 20241023
  Transmission Date: 20250115
  Serious: Yes (Other)
  Sender: SANDOZ
  Company Number: DK-PFIZER INC-2011209667

PATIENT
  Age: 53 Year
  Sex: Male

DRUGS (4)
  1. CYCLOSPORINE [Suspect]
     Active Substance: CYCLOSPORINE
     Indication: Dermatitis atopic
     Dosage: 3 MG/KG, UNK
     Route: 065
  2. IMURAN [Suspect]
     Active Substance: AZATHIOPRINE
     Indication: Dermatitis atopic
     Route: 065
  3. METHOTREXATE [Suspect]
     Active Substance: METHOTREXATE
     Indication: Dermatitis atopic
     Route: 065
  4. MYCOPHENOLATE MOFETIL [Suspect]
     Active Substance: MYCOPHENOLATE MOFETIL
     Indication: Product used for unknown indication
     Route: 065

REACTIONS (7)
  - Cutaneous T-cell lymphoma [Recovering/Resolving]
  - Dermatitis exfoliative generalised [Recovering/Resolving]
  - Lymphadenopathy [Recovering/Resolving]
  - Lymphocytosis [Recovering/Resolving]
  - Lymphadenopathy [Recovering/Resolving]
  - Dermatitis [Recovered/Resolved]
  - Off label use [Unknown]
